FAERS Safety Report 18300838 (Version 1)
Quarter: 2020Q3

REPORT INFORMATION
  Report Type: Report from Study
  Country: ES (occurrence: ES)
  Receive Date: 20200923
  Receipt Date: 20200923
  Transmission Date: 20201103
  Serious: Yes (Death)
  Sender: FDA-Public Use
  Company Number: ES-PFIZER INC-2020360312

PATIENT

DRUGS (2)
  1. 5?FU [Suspect]
     Active Substance: FLUOROURACIL
     Indication: PANCREATIC CARCINOMA
     Dosage: 200 MG/M2, DAILY (FIXED DOSAGE)
  2. GEMCITABINE HYDROCHLORIDE. [Suspect]
     Active Substance: GEMCITABINE HYDROCHLORIDE
     Indication: PANCREATIC CARCINOMA
     Dosage: 700 MG/M2, CYCLIC (WEEKLY FOR 3 CONSECUTIVE WEEKS EVERY 4 WEEKS)
     Route: 042

REACTIONS (1)
  - Death [Fatal]
